FAERS Safety Report 21867825 (Version 2)
Quarter: 2023Q1

REPORT INFORMATION
  Report Type: Spontaneous
  Country: UY (occurrence: UY)
  Receive Date: 20230116
  Receipt Date: 20230117
  Transmission Date: 20230418
  Serious: Yes (Hospitalization, Other)
  Sender: FDA-Public Use
  Company Number: UY-BoehringerIngelheim-2023-BI-212391

PATIENT
  Age: 81 Year
  Sex: Male

DRUGS (1)
  1. MICARDIS [Suspect]
     Active Substance: TELMISARTAN
     Indication: Hypertension
     Route: 048
     Dates: start: 2003, end: 20221223

REACTIONS (5)
  - Syncope [Recovered/Resolved]
  - Arrhythmia [Not Recovered/Not Resolved]
  - Fall [Recovered/Resolved]
  - Multiple fractures [Recovered/Resolved]
  - Obstruction [Recovered/Resolved with Sequelae]

NARRATIVE: CASE EVENT DATE: 20170101
